FAERS Safety Report 9073325 (Version 1)
Quarter: 2013Q1

REPORT INFORMATION
  Report Type: Report from Study
  Country: US (occurrence: US)
  Receive Date: 20130129
  Receipt Date: 20130129
  Transmission Date: 20140127
  Serious: No
  Sender: FDA-Public Use
  Company Number: US-ABBOTT-12P-163-0929256-00

PATIENT
  Age: 46 Year
  Sex: Female
  Weight: 60.38 kg

DRUGS (4)
  1. HUMIRA 40 MG/0.8 ML PEN [Suspect]
     Indication: CROHN^S DISEASE
     Dosage: 160 MG LOADING DOSE
     Dates: start: 20120417, end: 20120417
  2. HUMIRA 40 MG/0.8 ML PEN [Suspect]
     Dosage: 80 MG LOADING DOSE
  3. HUMIRA 40 MG/0.8 ML PEN [Suspect]
     Dosage: MAINTENANCE DOSE
  4. 6-MP [Concomitant]
     Indication: CROHN^S DISEASE
     Dates: start: 20120414

REACTIONS (1)
  - Injection site bruising [Recovered/Resolved]
